FAERS Safety Report 10484601 (Version 1)
Quarter: 2014Q3

REPORT INFORMATION
  Report Type: Report from Study
  Country: US (occurrence: US)
  Receive Date: 20140930
  Receipt Date: 20140930
  Transmission Date: 20150326
  Serious: No
  Sender: FDA-Public Use
  Company Number: US-ALEXION-A201002364

PATIENT
  Sex: Female

DRUGS (1)
  1. SOLIRIS [Suspect]
     Active Substance: ECULIZUMAB
     Indication: PAROXYSMAL NOCTURNAL HAEMOGLOBINURIA
     Dosage: UNK
     Route: 042
     Dates: start: 20100512

REACTIONS (12)
  - Diarrhoea [Unknown]
  - Anxiety [Unknown]
  - Asthenia [Unknown]
  - Constipation [Unknown]
  - Headache [Recovered/Resolved]
  - Abdominal distension [Unknown]
  - Abdominal pain [Unknown]
  - Depression [Unknown]
  - Quality of life decreased [Unknown]
  - Stress [Unknown]
  - Blood glucose increased [Unknown]
  - Fatigue [Unknown]
